FAERS Safety Report 7077323-3 (Version None)
Quarter: 2010Q4

REPORT INFORMATION
  Report Type: 
  Country: None (occurrence: None)
  Receive Date: 20101029
  Receipt Date: 20101029
  Transmission Date: 20110411
  Serious: No
  Sender: FDA-Public Use
  Company Number: None

PATIENT
  Sex: Male
  Weight: 9.9791 kg

DRUGS (1)
  1. HYLAND'S TEETHING PILLS [Suspect]
     Indication: TEETHING
     Dosage: UP TO 4 PILLS PER DAY PO
     Route: 048
     Dates: start: 20100501, end: 20101026

REACTIONS (3)
  - APNOEIC ATTACK [None]
  - FEBRILE CONVULSION [None]
  - PRODUCT QUALITY ISSUE [None]
